FAERS Safety Report 10924444 (Version 2)
Quarter: 2015Q2

REPORT INFORMATION
  Report Type: Spontaneous
  Country: US (occurrence: US)
  Receive Date: 20150318
  Receipt Date: 20150524
  Transmission Date: 20150821
  Serious: No
  Sender: FDA-Public Use
  Company Number: US-JNJFOC-20120608021

PATIENT
  Sex: Male

DRUGS (5)
  1. KETOCONAZOLE. [Suspect]
     Active Substance: KETOCONAZOLE
     Indication: DRUG LEVEL
     Dosage: ADMINISTERED IN THE EVENING OF DAY -1 AND DAY 2-3
     Route: 065
  2. BOSUTINIB [Suspect]
     Active Substance: BOSUTINIB
     Indication: DRUG LEVEL
     Dosage: ON DAY 1 OF EACH PERIOD; TOTALLY 2 PERIODS
     Route: 065
  3. PLACEBO [Suspect]
     Active Substance: UNSPECIFIED INGREDIENT
     Indication: DRUG LEVEL
     Dosage: ON DAY 1 OF EACH PERIOD; TOTALLY 3 PERIODS
     Route: 065
  4. BOSUTINIB [Suspect]
     Active Substance: BOSUTINIB
     Indication: DRUG LEVEL
     Dosage: ON DAY 1 OF EACH PERIOD; TOTALLY 3 PERIODS
     Route: 065
  5. PLACEBO [Suspect]
     Active Substance: UNSPECIFIED INGREDIENT
     Indication: DRUG LEVEL
     Dosage: ON DAY 1 OF EACH PERIOD; TOTALLY 2 PERIODS
     Route: 065

REACTIONS (10)
  - Abdominal pain [Unknown]
  - Vomiting [Unknown]
  - Gastrointestinal disorder [Unknown]
  - Dizziness [Unknown]
  - Nervous system disorder [Unknown]
  - Nausea [Unknown]
  - Headache [Unknown]
  - Application site dermatitis [Unknown]
  - Diarrhoea [Unknown]
  - Fatigue [Unknown]
